FAERS Safety Report 4838978-4 (Version None)
Quarter: 2005Q4

REPORT INFORMATION
  Report Type: 
  Country: None (occurrence: None)
  Receive Date: 20051031
  Receipt Date: 20050816
  Transmission Date: 20060501
  Serious: No
  Sender: FDA-Public Use
  Company Number: 200516248US

PATIENT
  Age: 45 Year
  Sex: Female
  Weight: 60.45 kg

DRUGS (3)
  1. KETEK [Suspect]
     Indication: BRONCHITIS
     Dosage: 400 (2 TABS) MG QD PO
     Route: 048
     Dates: start: 20050808, end: 20050810
  2. KETEK [Suspect]
     Indication: SINUSITIS
     Dosage: 400 (2 TABS) MG QD PO
     Route: 048
     Dates: start: 20050808, end: 20050810
  3. SALBUTAMOL (PROVENTIL INHALER) [Concomitant]

REACTIONS (2)
  - DIZZINESS [None]
  - VISION BLURRED [None]
